FAERS Safety Report 5333065-3 (Version None)
Quarter: 2007Q1

REPORT INFORMATION
  Report Type: 
  Country: None (occurrence: None)
  Receive Date: 20070306
  Receipt Date: 20060908
  Transmission Date: 20070707
  Serious: Yes (Hospitalization)
  Sender: FDA-Public Use
  Company Number: A03200605627

PATIENT
  Age: 92 Year
  Sex: Female
  Weight: 48.52 kg

DRUGS (5)
  1. PLAVIX [Suspect]
     Indication: CARDIAC DISORDER
     Dosage: 75 MG QD - ORAL
     Route: 048
     Dates: start: 19980101
  2. FOLIC ACID [Concomitant]
  3. ACETYLSALICYLIC ACID SRT [Concomitant]
  4. LANSOPRAZOLE [Concomitant]
  5. SIMVASTATIN [Concomitant]

REACTIONS (3)
  - CONTUSION [None]
  - CORONARY ARTERY OCCLUSION [None]
  - OEDEMA [None]
